FAERS Safety Report 4467689-2 (Version None)
Quarter: 2004Q3

REPORT INFORMATION
  Report Type: 
  Country: None (occurrence: None)
  Receive Date: 20040929
  Receipt Date: 20040920
  Transmission Date: 20050211
  Serious: No
  Sender: FDA-Public Use
  Company Number: CART-10371

PATIENT
  Age: 36 Year
  Sex: Male

DRUGS (1)
  1. CARTICEL [Suspect]
     Indication: BONE DISORDER
     Dosage: 1 NA ONCE IS
     Dates: start: 20030811, end: 20030811

REACTIONS (5)
  - GRAFT OVERGROWTH [None]
  - JOINT SPRAIN [None]
  - JOINT SWELLING [None]
  - PAIN [None]
  - PATELLA FRACTURE [None]
